FAERS Safety Report 11209683 (Version 1)
Quarter: 2015Q2

REPORT INFORMATION
  Report Type: Spontaneous
  Country: US (occurrence: US)
  Receive Date: 20150622
  Receipt Date: 20150622
  Transmission Date: 20150821
  Serious: No
  Sender: FDA-Public Use
  Company Number: US-ELI_LILLY_AND_COMPANY-US201506007172

PATIENT
  Age: 40 Year
  Sex: Female

DRUGS (1)
  1. HUMALOG [Suspect]
     Active Substance: INSULIN LISPRO
     Indication: PRODUCT USED FOR UNKNOWN INDICATION
     Dosage: UNK
     Route: 058

REACTIONS (6)
  - Nausea [Unknown]
  - Blood glucose increased [Not Recovered/Not Resolved]
  - Pollakiuria [Unknown]
  - Thirst [Unknown]
  - Drug dose omission [Unknown]
  - Irritability [Unknown]

NARRATIVE: CASE EVENT DATE: 20150604
